FAERS Safety Report 6212969-3 (Version None)
Quarter: 2009Q2

REPORT INFORMATION
  Report Type: 
  Country: None (occurrence: None)
  Receive Date: 20090603
  Receipt Date: 20090527
  Transmission Date: 20091009
  Serious: Yes (Hospitalization)
  Sender: FDA-Public Use
  Company Number: JP-ABBOTT-09P-087-0576022-00

PATIENT
  Age: 79 Year
  Sex: Male

DRUGS (9)
  1. KLARICID [Suspect]
     Indication: BRONCHITIS
     Route: 048
     Dates: start: 20080721
  2. KLARICID [Suspect]
     Indication: ALLERGY TEST POSITIVE
     Route: 048
     Dates: start: 20080201
  3. THEOPHYLLINE [Concomitant]
     Indication: BRONCHITIS
  4. L-CARBOCISTEINE [Concomitant]
     Indication: BRONCHITIS
  5. TULOBUTEROL [Concomitant]
     Indication: BRONCHITIS
  6. AMLODIPINE BESYLATE [Concomitant]
     Indication: DRUG USE FOR UNKNOWN INDICATION
  7. TAMSULOSIN HYDROCHLORIDE [Concomitant]
     Indication: DRUG USE FOR UNKNOWN INDICATION
  8. LISINOPRIL HYDRATE [Concomitant]
     Indication: DRUG USE FOR UNKNOWN INDICATION
  9. AMBROXOL HYDROCHLORIDE [Concomitant]
     Indication: DRUG USE FOR UNKNOWN INDICATION

REACTIONS (1)
  - LEUKOCYTOCLASTIC VASCULITIS [None]
